FAERS Safety Report 14610460 (Version 1)
Quarter: 2018Q1

REPORT INFORMATION
  Report Type: Spontaneous
  Country: RU (occurrence: RU)
  Receive Date: 20180307
  Receipt Date: 20180307
  Transmission Date: 20180509
  Serious: Yes (Other)
  Sender: FDA-Public Use
  Company Number: RU-ASTRAZENECA-2018SE28506

PATIENT
  Age: 67 Year
  Sex: Female
  Weight: 105 kg

DRUGS (8)
  1. INDOPHARM [Concomitant]
  2. BRILINTA [Suspect]
     Active Substance: TICAGRELOR
     Indication: PERCUTANEOUS CORONARY INTERVENTION
     Route: 048
     Dates: start: 201704
  3. GLICLAZIDE [Concomitant]
     Active Substance: GLICLAZIDE
  4. BETALOC [Concomitant]
     Active Substance: METOPROLOL TARTRATE
  5. VALS [Concomitant]
  6. BRILINTA [Suspect]
     Active Substance: TICAGRELOR
     Indication: ACUTE CORONARY SYNDROME
     Route: 048
     Dates: start: 201704
  7. CORVALOL [Concomitant]
     Active Substance: BROMISOVAL\PHENOBARBITAL SODIUM
  8. INSULIN [Concomitant]
     Active Substance: INSULIN NOS

REACTIONS (3)
  - Apnoea [Not Recovered/Not Resolved]
  - Chest pain [Not Recovered/Not Resolved]
  - Dyspnoea [Not Recovered/Not Resolved]

NARRATIVE: CASE EVENT DATE: 2017
